FAERS Safety Report 7153948-1 (Version None)
Quarter: 2010Q4

REPORT INFORMATION
  Report Type: 
  Country: None (occurrence: None)
  Receive Date: 20101124
  Receipt Date: 20101116
  Transmission Date: 20110411
  Serious: Yes (Disabling)
  Sender: FDA-Public Use
  Company Number: 2010MA004702

PATIENT
  Age: 52 Year
  Sex: Female

DRUGS (1)
  1. AMLODIPINE BESYLATE [Suspect]
     Indication: HYPERTENSION
     Dosage: 10 MG; PO
     Route: 048
     Dates: start: 20100719, end: 20101022

REACTIONS (4)
  - DEHYDRATION [None]
  - GLUCOSE URINE PRESENT [None]
  - THIRST [None]
  - URINE KETONE BODY PRESENT [None]
